FAERS Safety Report 12102210 (Version 2)
Quarter: 2020Q1

REPORT INFORMATION
  Report Type: Other
  Country: US (occurrence: US)
  Receive Date: 20160222
  Receipt Date: 20200126
  Transmission Date: 20200409
  Serious: No
  Sender: FDA-Public Use
  Company Number: US-ACORDA-ACO_112313_2015

PATIENT
  Sex: Female

DRUGS (6)
  1. AMPYRA [Suspect]
     Active Substance: DALFAMPRIDINE
     Indication: MULTIPLE SCLEROSIS
  2. AMPYRA [Suspect]
     Active Substance: DALFAMPRIDINE
     Indication: MUSCLE SPASTICITY
     Dosage: 10 MG, BID
     Route: 048
     Dates: start: 201007, end: 201812
  3. OCREVUS [Concomitant]
     Active Substance: OCRELIZUMAB
     Indication: PRODUCT USED FOR UNKNOWN INDICATION
     Dosage: INFUSION EVERY 6 MONTHS
     Route: 065
  4. AMPYRA [Suspect]
     Active Substance: DALFAMPRIDINE
     Indication: MUSCULAR WEAKNESS
  5. OCREVUS [Concomitant]
     Active Substance: OCRELIZUMAB
     Dosage: INFUSION EVERY 6 MONTHS
     Route: 065
     Dates: start: 201811
  6. DALFAMPRIDINE. [Suspect]
     Active Substance: DALFAMPRIDINE
     Indication: MULTIPLE SCLEROSIS
     Dosage: 10 MILLIGRAM, BID
     Route: 048
     Dates: start: 201812

REACTIONS (3)
  - Therapy cessation [Unknown]
  - Therapeutic response unexpected [Unknown]
  - Off label use [Unknown]
